FAERS Safety Report 6809946-8 (Version None)
Quarter: 2010Q2

REPORT INFORMATION
  Report Type: 
  Country: None (occurrence: None)
  Receive Date: 20100630
  Receipt Date: 20100623
  Transmission Date: 20101027
  Serious: Yes (Hospitalization)
  Sender: FDA-Public Use
  Company Number: A0866358A

PATIENT
  Sex: Female
  Weight: 60 kg

DRUGS (2)
  1. ELTROMBOPAG [Suspect]
     Indication: IDIOPATHIC THROMBOCYTOPENIC PURPURA
     Route: 048
     Dates: start: 20080215
  2. LEVOTHYROXINE SODIUM [Concomitant]
     Indication: SUPPLEMENTATION THERAPY
     Dosage: 50UG PER DAY
     Route: 048

REACTIONS (1)
  - THYROID CANCER [None]
